FAERS Safety Report 19972132 (Version 4)
Quarter: 2023Q2

REPORT INFORMATION
  Report Type: Report from Study
  Country: DE (occurrence: None)
  Receive Date: 20211020
  Receipt Date: 20230525
  Transmission Date: 20230721
  Serious: Yes (Hospitalization)
  Sender: FDA-Public Use
  Company Number: DE-ROCHE-2932764

PATIENT
  Age: 32 Year
  Sex: Female
  Weight: 62.5 kg

DRUGS (12)
  1. ATEZOLIZUMAB [Suspect]
     Active Substance: ATEZOLIZUMAB
     Indication: Triple negative breast cancer
     Dosage: ON 20/SEP/2021, LAST DOSE OF ATEZOLIZUMAB WAS ADMINISTERED PRIOR TO SAE.
     Route: 041
     Dates: start: 20210628
  2. PACLITAXEL [Suspect]
     Active Substance: PACLITAXEL
     Indication: Triple negative breast cancer
     Dosage: ON 13/SEP/2021, LAST DOSE OF PACLITAXEL WAS ADMINISTERED PRIOR TO SAE.
     Route: 042
     Dates: start: 20210628
  3. CARBOPLATIN [Suspect]
     Active Substance: CARBOPLATIN
     Indication: Triple negative breast cancer
     Dosage: ON 13/SEP/2021, LAST DOSE OF CARBOPLATIN WAS ADMINISTERED PRIOR TO SAE.
     Route: 042
     Dates: start: 20210628
  4. EPIRUBICIN [Suspect]
     Active Substance: EPIRUBICIN
     Indication: Triple negative breast cancer
     Dosage: ON 20/SEP/2021, LAST DOSE OF EPIRUBICIN WAS ADMINISTERED.
     Route: 042
     Dates: start: 20210920
  5. CYCLOPHOSPHAMIDE [Suspect]
     Active Substance: CYCLOPHOSPHAMIDE
     Indication: Triple negative breast cancer
     Dosage: ON 20/SEP/2021, LAST DOSE OF CYCLOPHOSPHAMIDE WAS ADMINISTERED PRIOR TO SAE
     Route: 042
     Dates: start: 20210920
  6. FAMOTIDINE [Concomitant]
     Active Substance: FAMOTIDINE
     Dates: start: 20210628
  7. DEXAMETHASONE [Concomitant]
     Active Substance: DEXAMETHASONE
     Dates: start: 20210628
  8. DEXAMETHASONE [Concomitant]
     Active Substance: DEXAMETHASONE
     Dates: start: 20210815
  9. CLEMASTINE [Concomitant]
     Active Substance: CLEMASTINE
     Dates: start: 20210628
  10. MESNA [Concomitant]
     Active Substance: MESNA
     Dates: start: 20210920
  11. LIPEGFILGRASTIM [Concomitant]
     Active Substance: LIPEGFILGRASTIM
     Dates: start: 20210920
  12. APREPITANT [Concomitant]
     Active Substance: APREPITANT
     Dates: start: 20210920

REACTIONS (1)
  - Febrile neutropenia [Recovered/Resolved]

NARRATIVE: CASE EVENT DATE: 20210927
